FAERS Safety Report 10486005 (Version 2)
Quarter: 2014Q4

REPORT INFORMATION
  Report Type: Spontaneous
  Country: JP (occurrence: JP)
  Receive Date: 20141001
  Receipt Date: 20141015
  Transmission Date: 20150528
  Serious: Yes (Other)
  Sender: FDA-Public Use
  Company Number: JP-AMGEN-JPNSP2014074186

PATIENT
  Age: 89 Year
  Sex: Female

DRUGS (20)
  1. EKSALB [Concomitant]
     Dosage: UNK
     Route: 061
     Dates: start: 201402, end: 201402
  2. DIOVAN [Concomitant]
     Active Substance: VALSARTAN
     Dosage: 80 MG, UNK
     Route: 048
     Dates: start: 201306, end: 201405
  3. NESP [Suspect]
     Active Substance: DARBEPOETIN ALFA
     Indication: NEPHROGENIC ANAEMIA
     Dosage: 30 MUG, UNK
     Route: 065
     Dates: start: 20130519, end: 20140710
  4. ARGAMATE [Concomitant]
     Active Substance: POLYSTYRENE
     Dosage: 1 DF, UNK
     Route: 048
     Dates: start: 201309
  5. SEPAMIT-R [Concomitant]
     Dosage: 1 G, UNK
     Route: 048
     Dates: start: 201310
  6. SENNA [Concomitant]
     Active Substance: SENNA LEAF\SENNOSIDES\SENNOSIDES A AND B
     Dosage: 1 DF, UNK
     Route: 048
     Dates: start: 201306
  7. AZUNOL                             /00620101/ [Concomitant]
     Dosage: UNK
     Route: 061
     Dates: start: 201403, end: 201403
  8. BOCHI SHEET [Concomitant]
     Dosage: 2 DF, UNK
     Route: 061
     Dates: start: 201302, end: 201302
  9. MAGNESIUM OXIDE. [Concomitant]
     Active Substance: MAGNESIUM OXIDE
     Dosage: 0.66 G, UNK
     Route: 048
     Dates: start: 201306
  10. ANTEBATE [Concomitant]
     Active Substance: BETAMETHASONE DIPROPIONATE
     Dosage: UNK
     Route: 061
     Dates: start: 201407, end: 201407
  11. FERROMIA [Concomitant]
     Active Substance: FERROUS CITRATE
     Dosage: 0.6 G, UNK
     Route: 048
     Dates: start: 201309
  12. LASIX [Concomitant]
     Active Substance: FUROSEMIDE
     Dosage: 0.5 G, UNK
     Route: 048
  13. ENALART [Concomitant]
     Dosage: 1 G, UNK
     Route: 048
     Dates: start: 201306
  14. CRAVIT [Concomitant]
     Active Substance: LEVOFLOXACIN
     Dosage: 250 MG, UNK
     Route: 048
     Dates: start: 201407, end: 201407
  15. TALION                             /01587402/ [Concomitant]
     Active Substance: BEPOTASTINE
     Dosage: 10 MG, BID
     Route: 048
     Dates: start: 201408
  16. ZINC OXIDE SIMPLE OINTMENT [Concomitant]
     Dosage: UNK
     Route: 061
     Dates: start: 201403, end: 201403
  17. MINITRO [Concomitant]
     Dosage: 27 MG, UNK
     Route: 062
     Dates: start: 201306
  18. ENSURE [Concomitant]
     Active Substance: AMINO ACIDS\DEXTROSE\ELECTROLYTES NOS\SOYBEAN OIL\VITAMINS
     Dosage: UNK
     Route: 048
     Dates: start: 201306
  19. ISOTONIC SODIUM CHLORIDE SOLUTION [Concomitant]
     Active Substance: SODIUM CHLORIDE
     Dosage: UNK
     Route: 065
     Dates: start: 201304
  20. OLIVE OIL [Concomitant]
     Active Substance: OLIVE OIL
     Dosage: UNK
     Route: 061
     Dates: start: 201402

REACTIONS (1)
  - Dermatitis bullous [Recovering/Resolving]

NARRATIVE: CASE EVENT DATE: 20140728
